FAERS Safety Report 6700062-2 (Version None)
Quarter: 2010Q2

REPORT INFORMATION
  Report Type: 
  Country: None (occurrence: None)
  Receive Date: 20100427
  Receipt Date: 20100427
  Transmission Date: 20101027
  Serious: Yes (Death)
  Sender: FDA-Public Use
  Company Number: None

PATIENT
  Age: 64 Year
  Sex: Male
  Weight: 84.369 kg

DRUGS (1)
  1. JANUVIA [Suspect]

REACTIONS (1)
  - PANCREATIC CARCINOMA [None]
